FAERS Safety Report 23105817 (Version 2)
Quarter: 2023Q4

REPORT INFORMATION
  Report Type: Spontaneous
  Country: FR (occurrence: FR)
  Receive Date: 20231025
  Receipt Date: 20231212
  Transmission Date: 20240110
  Serious: Yes (Death, Hospitalization, Other)
  Sender: FDA-Public Use
  Company Number: FR-BRISTOL-MYERS SQUIBB COMPANY-2023-151590

PATIENT
  Age: 75 Year
  Sex: Male
  Weight: 105 kg

DRUGS (15)
  1. NULOJIX [Suspect]
     Active Substance: BELATACEPT
     Indication: Transplant rejection
     Dosage: MONTHLY
     Route: 042
     Dates: start: 20200401, end: 20230806
  2. ELIQUIS [Concomitant]
     Active Substance: APIXABAN
     Indication: Atrial fibrillation
     Dosage: 1 TABLET TWO TIMES PER DAY
     Route: 048
     Dates: end: 20230809
  3. ELIQUIS [Concomitant]
     Active Substance: APIXABAN
     Indication: Atrial flutter
  4. PREDNISONE [Concomitant]
     Active Substance: PREDNISONE
     Indication: Renal transplant
     Dosage: 2 TABLETS ONCE A DAY
     Route: 048
  5. RAPAMUNE [Concomitant]
     Active Substance: SIROLIMUS
     Indication: Renal transplant
     Dosage: 3 TABLETS ONCE A DAY
     Route: 048
  6. CHOLECALCIFEROL [Concomitant]
     Active Substance: CHOLECALCIFEROL
     Indication: Renal transplant
     Dosage: 100000 IU, PER OS, ONE VIAL EVERY TWO MONTHS
     Route: 048
  7. FUROSEMIDE [Concomitant]
     Active Substance: FUROSEMIDE
     Indication: Atrial fibrillation
     Dosage: 3 TABLETS ONCE A DAY
     Route: 048
  8. FUROSEMIDE [Concomitant]
     Active Substance: FUROSEMIDE
     Indication: Atrial flutter
  9. BISOPROLOL FUMARATE [Concomitant]
     Active Substance: BISOPROLOL FUMARATE
     Indication: Atrial fibrillation
     Dosage: 1 TABLET PER DAY
     Route: 048
  10. BISOPROLOL FUMARATE [Concomitant]
     Active Substance: BISOPROLOL FUMARATE
     Indication: Atrial flutter
  11. DAPAGLIFLOZIN [Concomitant]
     Active Substance: DAPAGLIFLOZIN
     Indication: Type 2 diabetes mellitus
     Dosage: 1 TABLET PER DAY
     Route: 048
  12. OLODATEROL HYDROCHLORIDE\TIOTROPIUM BROMIDE MONOHYDRATE [Concomitant]
     Active Substance: OLODATEROL HYDROCHLORIDE\TIOTROPIUM BROMIDE MONOHYDRATE
     Indication: Pneumonia
     Dosage: 2.5?G/2.5?G 2 PUFFS, INHALATION TWICE A DAY
     Route: 055
  13. ATOVAQUONE [Concomitant]
     Active Substance: ATOVAQUONE
     Indication: Pneumocystis jirovecii pneumonia
     Dosage: 750 MG/5 ML, PER OS, ONCE A DAY
     Route: 048
  14. DOLIPRANE [Concomitant]
     Active Substance: ACETAMINOPHEN
     Indication: Sciatica
     Dosage: 3 TABLETS PER DAY
     Route: 048
  15. EVUSHELD [Concomitant]
     Active Substance: CILGAVIMAB\TIXAGEVIMAB
     Indication: Product used for unknown indication

REACTIONS (24)
  - Epstein-Barr virus associated lymphoma [Fatal]
  - Lung disorder [Fatal]
  - Herpes zoster [Unknown]
  - Epstein-Barr virus infection [Unknown]
  - Cognitive disorder [Unknown]
  - Peripheral arterial occlusive disease [Unknown]
  - Aortic aneurysm [Unknown]
  - Arthritis [Unknown]
  - Pneumonia pseudomonal [Unknown]
  - Cholecystitis acute [Unknown]
  - Fall [Unknown]
  - Pleural effusion [Unknown]
  - Primary effusion lymphoma [Unknown]
  - General physical health deterioration [Unknown]
  - Right ventricular failure [Unknown]
  - Cardiorenal syndrome [Unknown]
  - Acute kidney injury [Unknown]
  - Pneumonia [Unknown]
  - Flatulence [Unknown]
  - Vomiting [Unknown]
  - Aspiration [Unknown]
  - Ileus [Unknown]
  - Human herpesvirus 8 infection [Unknown]
  - Intestinal obstruction [Unknown]

NARRATIVE: CASE EVENT DATE: 20200101
